FAERS Safety Report 11227846 (Version 1)
Quarter: 2015Q2

REPORT INFORMATION
  Report Type: Spontaneous
  Country: US (occurrence: None)
  Receive Date: 20150629
  Receipt Date: 20150629
  Transmission Date: 20150821
  Serious: No
  Sender: FDA-Public Use
  Company Number: None

PATIENT
  Age: 41 Year
  Sex: Female
  Weight: 54.43 kg

DRUGS (1)
  1. PALIPERIDONE PALMITATE [Suspect]
     Active Substance: PALIPERIDONE PALMITATE
     Indication: SCHIZOPHRENIA
     Dosage: ONCE A MONTH  INTRAMUSCULAR
     Route: 030
     Dates: start: 20141213, end: 20150120

REACTIONS (3)
  - Amenorrhoea [None]
  - Muscle twitching [None]
  - Oculogyric crisis [None]

NARRATIVE: CASE EVENT DATE: 20150120
